FAERS Safety Report 5877205-6 (Version None)
Quarter: 2008Q3

REPORT INFORMATION
  Report Type: 
  Country: None (occurrence: None)
  Receive Date: 20080908
  Receipt Date: 20080908
  Transmission Date: 20090109
  Serious: Yes (Other)
  Sender: FDA-Public Use
  Company Number: None

PATIENT
  Age: 65 Year
  Sex: Female
  Weight: 67.1324 kg

DRUGS (1)
  1. BONIVA [Suspect]
     Indication: OSTEOPENIA
     Dosage: 1 PILL MONTHLY
     Dates: start: 20080825, end: 20080825

REACTIONS (8)
  - ABDOMINAL PAIN UPPER [None]
  - BODY TEMPERATURE DECREASED [None]
  - FEELING ABNORMAL [None]
  - GASTROENTERITIS VIRAL [None]
  - GASTROINTESTINAL PAIN [None]
  - MIGRAINE [None]
  - MUSCLE SPASMS [None]
  - SENSORY DISTURBANCE [None]
